FAERS Safety Report 7075119-X (Version None)
Quarter: 2010Q4

REPORT INFORMATION
  Report Type: 
  Country: None (occurrence: None)
  Receive Date: 20101029
  Receipt Date: 20100519
  Transmission Date: 20110411
  Serious: No
  Sender: FDA-Public Use
  Company Number: US-WYE-H15329110

PATIENT
  Age: 29 Year
  Sex: Female
  Weight: 52.21 kg

DRUGS (1)
  1. ALAVERT [Suspect]
     Indication: HYPERSENSITIVITY
     Route: 048
     Dates: start: 20100428, end: 20100512

REACTIONS (3)
  - HYPERSENSITIVITY [None]
  - NASAL DISCOMFORT [None]
  - THROAT IRRITATION [None]
